FAERS Safety Report 4329985-9 (Version None)
Quarter: 2004Q1

REPORT INFORMATION
  Report Type: 
  Country: None (occurrence: None)
  Receive Date: 20040329
  Receipt Date: 20040316
  Transmission Date: 20041129
  Serious: Yes (Death)
  Sender: FDA-Public Use
  Company Number: 04H-062-0254167-00

PATIENT
  Age: 60 Year
  Sex: Female

DRUGS (3)
  1. HEPARIN SODIUM [Suspect]
     Indication: ANTICOAGULANT THERAPY
     Dosage: NOT REPOTED, NOT REPORTED; SUBCUTANEOUS
     Route: 058
     Dates: start: 19920101
  2. PLASMA PROTEIN FRACTION (HUMAN) [Concomitant]
  3. PHYTONADIONE [Concomitant]

REACTIONS (3)
  - DISEASE RECURRENCE [None]
  - GENERAL PHYSICAL HEALTH DETERIORATION [None]
  - HAEMORRHAGE INTRACRANIAL [None]
